FAERS Safety Report 8784881 (Version 1)
Quarter: 2012Q4

REPORT INFORMATION
  Report Type: 
  Country: US (occurrence: US)
  Receive Date: 20120914
  Receipt Date: 20120914
  Transmission Date: 20130627
  Serious: No
  Sender: FDA-Public Use
  Company Number: US-ASTRAZENECA-2012SE69128

PATIENT
  Age: 52 Year
  Sex: Male

DRUGS (2)
  1. ATACAND [Suspect]
     Route: 048
  2. LOSARTAN HCTZ [Suspect]
     Route: 065

REACTIONS (2)
  - Feeling jittery [Unknown]
  - Dizziness [Unknown]
